FAERS Safety Report 8535602 (Version 3)
Quarter: 2012Q4

REPORT INFORMATION
  Report Type: 
  Country: US (occurrence: US)
  Receive Date: 20120430
  Receipt Date: 20120913
  Transmission Date: 20130627
  Serious: Yes (Hospitalization)
  Sender: FDA-Public Use
  Company Number: US-BAYER-2012-040005

PATIENT
  Age: 30 Year
  Sex: Female
  Weight: 168.71 kg

DRUGS (40)
  1. YAZ [Suspect]
     Indication: CONTRACEPTION
     Dosage: UNK
     Dates: start: 200905, end: 20090723
  2. OCELLA [Suspect]
     Indication: CONTRACEPTION
     Dosage: UNK
     Dates: start: 20090724, end: 20090811
  3. PROZAC [Concomitant]
     Dosage: 60 mg, daily
     Route: 048
  4. RISPERDAL [Concomitant]
     Indication: BIPOLAR DISORDER
     Dosage: 4 mg, daily
     Route: 048
     Dates: start: 20090706, end: 20090817
  5. RISPERDAL [Concomitant]
     Indication: DEPRESSION
  6. BUSPIRONE [Concomitant]
     Indication: ANXIETY
     Dosage: 5 mg, three times daily
     Route: 048
     Dates: start: 20090201, end: 20091220
  7. LISINOPRIL [Concomitant]
     Indication: HYPERTENSION
     Dosage: 20 mg,
     Route: 048
     Dates: start: 20090630, end: 20100322
  8. LISINOPRIL [Concomitant]
     Indication: HYPERTENSION
     Dosage: 5 mg, daily
     Route: 048
  9. KLONOPIN [Concomitant]
     Dosage: 0.25 mg, twice a day
     Route: 048
  10. ZYPREXA [Concomitant]
     Indication: BIPOLAR DISORDER
     Dosage: 10 mg, UNK
     Route: 048
     Dates: start: 20090519, end: 20100201
  11. ZYPREXA [Concomitant]
     Indication: DEPRESSION
  12. GEODON [Concomitant]
     Indication: BIPOLAR DISORDER
     Dosage: 80 mg, UNK
     Route: 048
     Dates: start: 20090218, end: 20100608
  13. GEODON [Concomitant]
     Indication: DEPRESSION
  14. DIVALPROEX [Concomitant]
     Dosage: 250 mg, UNK
     Route: 048
     Dates: start: 20090602
  15. LAMOTRIGINE [Concomitant]
     Indication: BIPOLAR DISORDER
     Dosage: 100 mg, UNK
     Route: 048
     Dates: start: 20090602
  16. LAMOTRIGINE [Concomitant]
     Indication: DEPRESSION
     Dosage: 100-200 mg
     Dates: start: 20090301, end: 20100215
  17. PAROXETINE [Concomitant]
     Dosage: 20 mg, UNK
     Route: 048
     Dates: start: 20090623
  18. LISINOPRILHYDROCHLOROTHIAZIDE RATIOPHARM [Concomitant]
     Dosage: 10-12.5
     Route: 048
     Dates: start: 20090630
  19. LITHIUM CARBONATE [Concomitant]
     Indication: BIPOLAR DISORDER
     Dosage: 300 mg, UNK
     Route: 048
     Dates: start: 20090706, end: 20100608
  20. LITHIUM CARBONATE [Concomitant]
     Indication: DEPRESSION
  21. FLUOXETINE [Concomitant]
     Indication: BIPOLAR DISORDER
     Dosage: 20 mg, UNK
     Route: 048
     Dates: start: 20090706
  22. FLUOXETINE [Concomitant]
     Indication: DEPRESSION
     Dosage: 40 mg, BID
     Dates: start: 20090706, end: 20100208
  23. DETROL [Concomitant]
     Indication: DYSURIA
     Dosage: 2 mg, UNK
     Route: 048
     Dates: start: 20090604, end: 20090926
  24. PROAIR HFA [Concomitant]
     Dosage: 90 ?g, Inhalation
     Route: 045
     Dates: start: 20090725
  25. BUPROPION SR [Concomitant]
     Indication: DEPRESSION
     Dosage: 150 mg, QD
     Route: 048
     Dates: start: 20090805, end: 20100430
  26. LAMICTAL [Concomitant]
  27. LOESTRIN FE [Concomitant]
     Dosage: UNK
     Dates: start: 20090519
  28. ZOLOFT [Concomitant]
  29. CLONAZEPAM [Concomitant]
     Indication: BIPOLAR DISORDER
     Dosage: 0.5 mg, QD
     Dates: start: 20090309, end: 20090731
  30. CLONAZEPAM [Concomitant]
     Indication: DEPRESSION
  31. SYNTHROID [Concomitant]
     Indication: THYROID DISORDER
     Dosage: 50 ?g, QD
     Dates: start: 20090727, end: 20110610
  32. WELLBUTRIN XL [Concomitant]
  33. BUSPAR [Concomitant]
  34. AZITHROMYCIN [Concomitant]
     Dosage: 250 mg, UNK
     Dates: start: 20090323
  35. SERTRALINE [Concomitant]
     Indication: BIPOLAR DISORDER
     Dosage: 20 mg, UNK
     Dates: start: 20090424, end: 20091028
  36. SERTRALINE [Concomitant]
     Indication: DEPRESSION
  37. DEPAKOTE [Concomitant]
     Indication: BIPOLAR DISORDER
     Dosage: UNK
     Dates: start: 20090602, end: 20100621
  38. DEPAKOTE [Concomitant]
     Indication: DEPRESSION
  39. HALDOL [Concomitant]
  40. LEVOTHYROXINE [Concomitant]
     Dosage: 50 ug, QD

REACTIONS (8)
  - Pulmonary embolism [None]
  - Pain [None]
  - Injury [None]
  - General physical health deterioration [None]
  - Emotional distress [None]
  - Anxiety [None]
  - Chest pain [None]
  - Dyspnoea [None]
